FAERS Safety Report 5690574-5 (Version None)
Quarter: 2008Q2

REPORT INFORMATION
  Report Type: 
  Country: None (occurrence: None)
  Receive Date: 20080401
  Receipt Date: 19910416
  Transmission Date: 20081010
  Serious: Yes (Death, Other)
  Sender: FDA-Public Use
  Company Number: US-ROCHE-910200536001

PATIENT
  Sex: Male
  Weight: 3.4 kg

DRUGS (1)
  1. ACCUTANE [Suspect]
     Indication: DRUG USE FOR UNKNOWN INDICATION
     Dates: start: 19891029, end: 19900401

REACTIONS (3)
  - COMA [None]
  - DEATH [None]
  - INBORN ERROR OF METABOLISM [None]
